FAERS Safety Report 19159193 (Version 2)
Quarter: 2021Q2

REPORT INFORMATION
  Report Type: Report from Study
  Country: US (occurrence: US)
  Receive Date: 20210420
  Receipt Date: 20210510
  Transmission Date: 20210717
  Serious: Yes (Hospitalization, Other)
  Sender: FDA-Public Use
  Company Number: US-GILEAD-2021-0524661

PATIENT
  Age: 10 Year
  Sex: Female

DRUGS (1)
  1. AZTREONAM LYSINE [Suspect]
     Active Substance: AZTREONAM LYSINE
     Indication: PSEUDOMONAS INFECTION
     Dosage: 75 MG, TID, 28 DAYS ON AND 28 DAYS OFF
     Route: 055
     Dates: start: 20171207

REACTIONS (2)
  - Cystic fibrosis [Not Recovered/Not Resolved]
  - Pseudomonas infection [Unknown]
